FAERS Safety Report 8910886 (Version 1)
Quarter: 2012Q4

REPORT INFORMATION
  Report Type: 
  Country: US (occurrence: US)
  Receive Date: 20121115
  Receipt Date: 20121115
  Transmission Date: 20130627
  Serious: Yes (Other)
  Sender: FDA-Public Use
  Company Number: US-ELI_LILLY_AND_COMPANY-US201211002534

PATIENT
  Sex: Female

DRUGS (2)
  1. FORTEO [Suspect]
     Indication: OSTEOPOROSIS
     Dosage: UNK
     Dates: start: 201207
  2. FORTEO [Suspect]
     Dosage: UNK
     Dates: start: 201207

REACTIONS (7)
  - Leukaemia [Unknown]
  - Anaemia [Unknown]
  - Spinal fracture [Unknown]
  - Back pain [Unknown]
  - Confusional state [Unknown]
  - Fatigue [Unknown]
  - Malaise [Unknown]
